FAERS Safety Report 6223573-5 (Version None)
Quarter: 2009Q2

REPORT INFORMATION
  Report Type: 
  Country: None (occurrence: None)
  Receive Date: 20090610
  Receipt Date: 20090601
  Transmission Date: 20091009
  Serious: Yes (Congenital Anomaly)
  Sender: FDA-Public Use
  Company Number: GXKR2009GB06436

PATIENT
  Weight: 3.6 kg

DRUGS (4)
  1. LAMOTRIGINE [Suspect]
     Dosage: MATERNAL DOSE: 200 MG, BID, TRANSPLACENTAL
     Route: 064
  2. ALCOHOL (ETHANOL) [Concomitant]
  3. COCAINE (COCAINE) [Concomitant]
  4. AMPHETAMINE SULFATE [Concomitant]

REACTIONS (3)
  - MATERNAL DRUGS AFFECTING FOETUS [None]
  - PATENT DUCTUS ARTERIOSUS [None]
  - PULMONARY VALVE STENOSIS [None]
